FAERS Safety Report 12247787 (Version 3)
Quarter: 2021Q4

REPORT INFORMATION
  Report Type: Other
  Country: CA (occurrence: None)
  Receive Date: 20160408
  Receipt Date: 20211125
  Transmission Date: 20220303
  Serious: Yes (Other)
  Sender: FDA-Public Use
  Company Number: CA-ROCHE-1736047

PATIENT
  Age: 65 Year
  Sex: Female

DRUGS (11)
  1. RITUXAN [Suspect]
     Active Substance: RITUXIMAB
     Indication: Rheumatoid arthritis
     Dosage: DAY 1,15. PREVIOUS INFUSION ON 14/JUN/2017, CURRENT INFUSIONON 28/JUN/2017
     Route: 042
     Dates: start: 20150410
  2. METHYLPREDNISOLONE [Suspect]
     Active Substance: METHYLPREDNISOLONE
     Indication: Product used for unknown indication
     Dosage: DAY 1,15.
     Route: 042
     Dates: start: 20150410, end: 20151008
  3. VAGIFEM [Concomitant]
     Active Substance: ESTRADIOL
     Dosage: 10
  4. DIPHENHYDRAMINE HYDROCHLORIDE [Concomitant]
     Active Substance: DIPHENHYDRAMINE HYDROCHLORIDE
     Route: 048
     Dates: start: 20150410
  5. ACETAMINOPHEN [Concomitant]
     Active Substance: ACETAMINOPHEN
     Route: 048
     Dates: start: 20150410
  6. SOLU-CORTEF [Concomitant]
     Active Substance: HYDROCORTISONE SODIUM SUCCINATE
     Route: 042
     Dates: start: 20151022
  7. PROMETRIUM [Concomitant]
     Active Substance: PROGESTERONE
  8. OXAZEPAM [Concomitant]
     Active Substance: OXAZEPAM
  9. OXYCODONE [Concomitant]
     Active Substance: OXYCODONE
  10. MELOXICAM [Concomitant]
     Active Substance: MELOXICAM
  11. DIAZEPAM [Concomitant]
     Active Substance: DIAZEPAM

REACTIONS (11)
  - Urogenital disorder [Unknown]
  - Heart rate increased [Unknown]
  - Swelling face [Unknown]
  - White blood cells urine positive [Unknown]
  - Arthralgia [Unknown]
  - Arthralgia [Recovered/Resolved]
  - Malaise [Recovered/Resolved]
  - Asthenia [Recovered/Resolved]
  - Headache [Unknown]
  - Back pain [Unknown]
  - Osteoarthritis [Unknown]

NARRATIVE: CASE EVENT DATE: 20151001
